FAERS Safety Report 22318329 (Version 1)
Quarter: 2023Q2

REPORT INFORMATION
  Report Type: Spontaneous
  Country: US (occurrence: US)
  Receive Date: 20230515
  Receipt Date: 20230515
  Transmission Date: 20230721
  Serious: Yes (Other)
  Sender: FDA-Public Use
  Company Number: US-ABBVIE-4762358

PATIENT
  Sex: Female

DRUGS (1)
  1. LUPRON DEPOT [Suspect]
     Active Substance: LEUPROLIDE ACETATE
     Indication: Product used for unknown indication

REACTIONS (6)
  - Visual impairment [Unknown]
  - Diabetes mellitus [Unknown]
  - Hepatic enzyme increased [Unknown]
  - Alopecia [Unknown]
  - Internal injury [Unknown]
  - Tooth loss [Unknown]
